FAERS Safety Report 7726346-7 (Version None)
Quarter: 2011Q3

REPORT INFORMATION
  Report Type: 
  Country: None (occurrence: None)
  Receive Date: 20110831
  Receipt Date: 20110818
  Transmission Date: 20111222
  Serious: Yes (Life-Threatening, Hospitalization)
  Sender: FDA-Public Use
  Company Number: 1000023115

PATIENT
  Age: 89 Year
  Sex: Female

DRUGS (6)
  1. EXELON [Suspect]
     Dosage: 9.5 MG (9.5 MG, 1 IN 1 D),TRANSDERMAL
     Route: 062
     Dates: end: 20110509
  2. EXELON [Suspect]
     Dosage: 9.5 MG (9.5 MG, 1 IN 1 D),TRANSDERMAL
     Route: 062
     Dates: start: 20110510
  3. ACTONEL (RISEDRONATE SODIUM)(RISEDRONATE SODIUM) [Concomitant]
  4. MEMANTINE HYDROCHLORIDE [Suspect]
     Indication: DEMENTIA ALZHEIMER'S TYPE
     Dosage: 20 MG (20 MG, 1 IN 1 D),ORAL
     Route: 048
     Dates: start: 20110421, end: 20110509
  5. STABLON (TIANEPTINE SODIUM)(TIANEPTINE SODIUM) [Concomitant]
  6. ZANIDIP (LERCANIDIPINE HYDROCHLORIDE)(LERCANIDIPINE HYDROCHLORIDE) [Concomitant]

REACTIONS (3)
  - ASTHENIA [None]
  - ATRIOVENTRICULAR BLOCK SECOND DEGREE [None]
  - IMPAIRED SELF-CARE [None]
